FAERS Safety Report 4713605-5 (Version None)
Quarter: 2005Q3

REPORT INFORMATION
  Report Type: 
  Country: None (occurrence: None)
  Receive Date: 20050711
  Receipt Date: 20050628
  Transmission Date: 20060218
  Serious: Yes (Life-Threatening, Hospitalization)
  Sender: FDA-Public Use
  Company Number: 2005094755

PATIENT
  Age: 34 Year
  Sex: Female
  Weight: 52 kg

DRUGS (10)
  1. DOXORUBICIN HCL [Suspect]
     Indication: SYNOVIAL SARCOMA
     Dosage: 20 MG/M2 (1 IN 1 D), INTRAVENOUS
     Route: 042
     Dates: start: 20050411, end: 20050525
  2. IFOSFAMIDE [Suspect]
     Indication: SYNOVIAL SARCOMA
     Dosage: 2.5 MG/M2 (CYCLICAL), INTRAVENOUS
     Route: 042
     Dates: start: 20050411, end: 20050525
  3. MESNA [Suspect]
     Indication: SYNOVIAL SARCOMA
     Dosage: 25 MG/M2 (CYCLICAL), INTRAVENOUS
     Route: 042
     Dates: start: 20050411, end: 20050525
  4. DEXAMETHASONE [Suspect]
     Indication: ILL-DEFINED DISORDER
     Dosage: 20 MG (20 MG, 1 IN 1 D), INTRAVENOUS
     Route: 042
     Dates: start: 20050411, end: 20050416
  5. SOLU-MEDROL [Suspect]
     Indication: ILL-DEFINED DISORDER
     Dosage: 60 MG (CYCLICAL), INTRAVENOUS
     Route: 042
     Dates: start: 20050502, end: 20050525
  6. DACARBAZINE [Suspect]
     Indication: SYNOVIAL SARCOMA
     Dosage: 300 MG/M2 (CYCLICAL),  INTRAVENOUS
     Route: 042
     Dates: start: 20050411, end: 20050525
  7. ONDANSETRON HCL [Suspect]
     Indication: ILL-DEFINED DISORDER
     Dosage: 16 MG (8 MG, 2 IN 1D), INTRAVENOUS
     Route: 042
     Dates: start: 20050411, end: 20050425
  8. CHLORPROMAZINE [Suspect]
     Indication: ILL-DEFINED DISORDER
     Dosage: INTRAVENOUS
     Route: 042
     Dates: start: 20050503, end: 20050503
  9. DARBEPOETIN ALFA (DARBEPOETIN ALFA) [Suspect]
     Indication: ANAEMIA
     Dosage: 150 MG (1 WK), INTRAVENOUS
     Route: 042
     Dates: start: 20050503
  10. PEGFILGRASTIM (PEGFILGRASTIM) [Suspect]
     Indication: NEUTROPENIA
     Dosage: 6 MG (1 IN 1 D), SUBCUTANEOUS
     Route: 058
     Dates: start: 20050415, end: 20050515

REACTIONS (19)
  - ANAEMIA [None]
  - ASCITES [None]
  - BRAIN OEDEMA [None]
  - BUDD-CHIARI SYNDROME [None]
  - CYTOLYTIC HEPATITIS [None]
  - DIARRHOEA HAEMORRHAGIC [None]
  - HEPATIC ENCEPHALOPATHY [None]
  - HEPATIC FAILURE [None]
  - HEPATORENAL SYNDROME [None]
  - LIVER TRANSPLANT [None]
  - LOSS OF CONSCIOUSNESS [None]
  - METABOLIC ACIDOSIS [None]
  - NEUTROPENIA [None]
  - PLEURAL EFFUSION [None]
  - PORTAL VEIN THROMBOSIS [None]
  - SHOCK [None]
  - SINUS TACHYCARDIA [None]
  - THROMBOCYTOPENIA [None]
  - VOMITING [None]
